FAERS Safety Report 7658377-X (Version None)
Quarter: 2011Q3

REPORT INFORMATION
  Report Type: 
  Country: None (occurrence: None)
  Receive Date: 20110802
  Receipt Date: 20110719
  Transmission Date: 20111222
  Serious: Yes (Other)
  Sender: FDA-Public Use
  Company Number: GB-DEXPHARM-20110992

PATIENT
  Age: 60 Year
  Sex: Male

DRUGS (5)
  1. FERROUS SULFATE TAB [Concomitant]
  2. OMEPRAZOLE [Suspect]
     Indication: DYSPEPSIA
     Dosage: 20 MG MILLGRAM(S) , ORAL
     Route: 048
     Dates: start: 20030101, end: 20110525
  3. QUINNIE [Concomitant]
  4. THIAMINE [Concomitant]
  5. VITMAIN B [Concomitant]

REACTIONS (3)
  - GRAND MAL CONVULSION [None]
  - HYPOCALCAEMIA [None]
  - HYPOMAGNESAEMIA [None]
